FAERS Safety Report 13766445 (Version 1)
Quarter: 2017Q3

REPORT INFORMATION
  Report Type: Report from Study
  Country: BR (occurrence: BR)
  Receive Date: 20170719
  Receipt Date: 20170719
  Transmission Date: 20171127
  Serious: Yes (Other)
  Sender: FDA-Public Use
  Company Number: PHHY2017BR105343

PATIENT
  Sex: Female
  Weight: 55 kg

DRUGS (2)
  1. CALCIUM [Concomitant]
     Active Substance: CALCIUM
     Indication: PRODUCT USED FOR UNKNOWN INDICATION
     Route: 065
  2. ACLASTA [Suspect]
     Active Substance: ZOLEDRONIC ACID
     Indication: OSTEOPENIA
     Dosage: 1 DF (5 MG/100 ML), Q12MO
     Route: 042

REACTIONS (6)
  - Thyroid disorder [Unknown]
  - Arthralgia [Unknown]
  - Diabetes mellitus [Unknown]
  - Pain [Unknown]
  - Spinal pain [Unknown]
  - Cardiac disorder [Unknown]
